FAERS Safety Report 4853138-9 (Version None)
Quarter: 2005Q4

REPORT INFORMATION
  Report Type: 
  Country: None (occurrence: None)
  Receive Date: 20051214
  Receipt Date: 20051123
  Transmission Date: 20060501
  Serious: Yes (Hospitalization)
  Sender: FDA-Public Use
  Company Number: US-AVENTIS-200519876US

PATIENT
  Sex: Female
  Weight: 90.7 kg

DRUGS (2)
  1. KETEK [Suspect]
     Indication: SINUSITIS
     Route: 048
     Dates: start: 20051119, end: 20051119
  2. IMITREX [Concomitant]
     Dosage: DOSE: UNK

REACTIONS (18)
  - BLOOD PRESSURE INCREASED [None]
  - DIPLOPIA [None]
  - DYSARTHRIA [None]
  - DYSPHAGIA [None]
  - EYE PAIN [None]
  - FACIAL PAIN [None]
  - FACIAL PALSY [None]
  - GLOSSODYNIA [None]
  - HEADACHE [None]
  - HYPOAESTHESIA ORAL [None]
  - MUSCLE TWITCHING [None]
  - MUSCULOSKELETAL STIFFNESS [None]
  - NEUROMYOPATHY [None]
  - PARAESTHESIA ORAL [None]
  - PHARYNGEAL HYPOAESTHESIA [None]
  - VISION BLURRED [None]
  - VISUAL DISTURBANCE [None]
  - WHEEZING [None]
